FAERS Safety Report 11785496 (Version 1)
Quarter: 2015Q4

REPORT INFORMATION
  Report Type: Report from Study
  Country: US (occurrence: US)
  Receive Date: 20151130
  Receipt Date: 20151130
  Transmission Date: 20160305
  Serious: Yes (Hospitalization)
  Sender: FDA-Public Use
  Company Number: US-BIOGENIDEC-2015BI156460

PATIENT
  Sex: Male

DRUGS (11)
  1. REQUIP [Concomitant]
     Active Substance: ROPINIROLE HYDROCHLORIDE
  2. OMEPRAZOLE. [Concomitant]
     Active Substance: OMEPRAZOLE
  3. BACLOFEN. [Concomitant]
     Active Substance: BACLOFEN
  4. ZANAFLEX [Concomitant]
     Active Substance: TIZANIDINE HYDROCHLORIDE
  5. TECFIDERA [Suspect]
     Active Substance: DIMETHYL FUMARATE
     Indication: MULTIPLE SCLEROSIS
     Route: 048
  6. DEXTROAMPHETAMINE SULFATE. [Concomitant]
     Active Substance: DEXTROAMPHETAMINE SULFATE
  7. MELOXICAM. [Concomitant]
     Active Substance: MELOXICAM
  8. SINEMET CR [Concomitant]
     Active Substance: CARBIDOPA\LEVODOPA
  9. ANDROGEL [Concomitant]
     Active Substance: TESTOSTERONE
  10. MIRAPEX [Concomitant]
     Active Substance: PRAMIPEXOLE DIHYDROCHLORIDE
  11. APOKYN [Concomitant]
     Active Substance: APOMORPHINE HYDROCHLORIDE

REACTIONS (3)
  - Spinal fracture [Unknown]
  - Brain operation [Unknown]
  - Skull fracture [Unknown]
